FAERS Safety Report 8953243 (Version 2)
Quarter: 2012Q4

REPORT INFORMATION
  Report Type: 
  Country: JP (occurrence: JP)
  Receive Date: 20121206
  Receipt Date: 20121220
  Transmission Date: 20130627
  Serious: Yes (Hospitalization)
  Sender: FDA-Public Use
  Company Number: JP-009507513-1212JPN001096

PATIENT
  Age: 74 Year
  Sex: Female

DRUGS (6)
  1. BONALON [Suspect]
     Indication: OSTEOPOROSIS
     Dosage: 35 mg, qw
     Route: 048
     Dates: start: 2006
  2. ALENDRONATE SODIUM [Suspect]
     Indication: OSTEOPOROSIS
     Dosage: 5 mg, qd
     Route: 048
     Dates: end: 20121119
  3. EDIROL [Concomitant]
     Indication: OSTEOPOROSIS
     Dosage: 0,75 Microgram, qd
     Route: 048
     Dates: end: 20121203
  4. JUVELA [Concomitant]
     Indication: LUMBAR SPINAL STENOSIS
     Dosage: 300 mg, qd
     Route: 048
  5. RASILEZ [Concomitant]
     Indication: HYPERTENSION
     Dosage: 150 mg, qd
     Route: 048
  6. LIPITOR [Concomitant]
     Indication: HYPERCHOLESTEROLAEMIA
     Dosage: 10 mg, qd
     Route: 048

REACTIONS (1)
  - Femur fracture [Recovering/Resolving]
